FAERS Safety Report 8335553-4 (Version None)
Quarter: 2012Q2

REPORT INFORMATION
  Report Type: 
  Country: None (occurrence: None)
  Receive Date: 20120503
  Receipt Date: 20120419
  Transmission Date: 20120825
  Serious: Yes (Hospitalization)
  Sender: FDA-Public Use
  Company Number: CHPA2012US009496

PATIENT
  Age: 33 Year
  Sex: Female
  Weight: 47 kg

DRUGS (2)
  1. LEVOTHYROXINE SODIUM [Concomitant]
     Indication: HYPOTHYROIDISM
  2. DIPHENHYDRAMINE HCL [Suspect]
     Dosage: UNK, UNK

REACTIONS (10)
  - HAEMOGLOBIN DECREASED [None]
  - BLOOD GASES ABNORMAL [None]
  - WHITE BLOOD CELL COUNT INCREASED [None]
  - ELECTROCARDIOGRAM QRS COMPLEX PROLONGED [None]
  - GRAND MAL CONVULSION [None]
  - TACHYCARDIA [None]
  - INTENTIONAL OVERDOSE [None]
  - HAEMATOCRIT DECREASED [None]
  - LETHARGY [None]
  - UNRESPONSIVE TO STIMULI [None]
